FAERS Safety Report 21584982 (Version 1)
Quarter: 2022Q4

REPORT INFORMATION
  Report Type: Spontaneous
  Country: US (occurrence: US)
  Receive Date: 20221111
  Receipt Date: 20221111
  Transmission Date: 20230112
  Serious: No
  Sender: FDA-Public Use
  Company Number: US-MYLANLABS-2022M1117296

PATIENT
  Age: 27 Year
  Sex: Female
  Weight: 56.7 kg

DRUGS (1)
  1. XULANE [Suspect]
     Active Substance: ETHINYL ESTRADIOL\NORELGESTROMIN
     Indication: Contraception
     Dosage: 150/35 MICROGRAM, QD (1 PATCH PER WEEK FOR 3 WEEKS THEN 1 WEEK WITHOUT THE PATCH)
     Route: 062
     Dates: start: 202203

REACTIONS (5)
  - Application site pain [Recovering/Resolving]
  - Application site pruritus [Recovering/Resolving]
  - Application site vesicles [Recovering/Resolving]
  - Application site erythema [Unknown]
  - Product leakage [Unknown]

NARRATIVE: CASE EVENT DATE: 20221001
